FAERS Safety Report 9012156 (Version 2)
Quarter: 2013Q1

REPORT INFORMATION
  Report Type: Spontaneous
  Country: US (occurrence: None)
  Receive Date: 20121227
  Receipt Date: 20130116
  Transmission Date: 20140127
  Serious: Yes (Death, Hospitalization)
  Sender: FDA-Public Use
  Company Number: UTC-027054

PATIENT
  Age: 50 Year
  Sex: Female
  Weight: 88.2 kg

DRUGS (2)
  1. TYVASO (6 MICROGRAM, AEROSOL FOR INHALATION) (TREPROSTINIL SODIUM) [Suspect]
     Indication: PULMONARY ARTERIAL HYPERTENSION
     Route: 055
     Dates: start: 20121205
  2. TRACLEER (BOSENTAN) [Concomitant]

REACTIONS (1)
  - Death [None]
